FAERS Safety Report 5648849-1 (Version None)
Quarter: 2008Q1

REPORT INFORMATION
  Report Type: 
  Country: None (occurrence: None)
  Receive Date: 20080229
  Receipt Date: 20080214
  Transmission Date: 20080703
  Serious: Yes (Hospitalization)
  Sender: FDA-Public Use
  Company Number: 2008S1002421

PATIENT
  Age: 72 Year
  Sex: Male

DRUGS (11)
  1. CIPROFLOXACIN [Suspect]
     Indication: CHEMOTHERAPY
     Dates: start: 20070622, end: 20071116
  2. FLUCONAZOLE [Suspect]
     Indication: CHEMOTHERAPY
     Dates: start: 20070622, end: 20071116
  3. LANSOPRAZOLE [Suspect]
  4. ONDANSETRON HCL [Suspect]
  5. ACYCLOVIR [Suspect]
     Dates: start: 20070622, end: 20071116
  6. ALENDRONATE (ALENDRONATE SODIUM) [Suspect]
     Dates: start: 20071201
  7. ALLOPURINOL [Suspect]
  8. PREDNISOLONE [Suspect]
     Dates: start: 20070622, end: 20071116
  9. CYCLOPHOSPHAMIDE [Suspect]
     Dates: start: 20070622, end: 20071116
  10. RITUXIMAB (RITUXIMAB) [Suspect]
     Dates: start: 20070622, end: 20071116
  11. VINCRISTINE [Suspect]
     Dates: start: 20070622, end: 20071116

REACTIONS (1)
  - TOXIC SKIN ERUPTION [None]
